FAERS Safety Report 26211926 (Version 1)
Quarter: 2025Q4

REPORT INFORMATION
  Report Type: Spontaneous
  Country: GB (occurrence: GB)
  Receive Date: 20251230
  Receipt Date: 20251230
  Transmission Date: 20260118
  Serious: Yes (Other)
  Sender: RANBAXY
  Company Number: GB-MHRA-MED-202512181508116900-LNSKB

PATIENT
  Sex: Male

DRUGS (4)
  1. GEMCITABINE [Suspect]
     Active Substance: GEMCITABINE
     Indication: Mesothelioma
     Dosage: 1500 MILLIGRAM, 1500MG - IV INFUSION 30 MINUTES
     Route: 040
  2. RAMUCIRUMAB [Suspect]
     Active Substance: RAMUCIRUMAB
     Indication: Mesothelioma
     Dosage: 750 MILLIGRAM, 750MG - IV INFUSION 1 HOUR
     Route: 040
  3. DEXAMETHASONE [Concomitant]
     Active Substance: DEXAMETHASONE
     Indication: Product used for unknown indication
     Dosage: UNK
     Route: 065
  4. ONDANSETRON [Concomitant]
     Active Substance: ONDANSETRON
     Indication: Product used for unknown indication
     Dosage: UNK
     Route: 065

REACTIONS (6)
  - Contusion [Unknown]
  - Swelling face [Unknown]
  - Swelling [Unknown]
  - Dyspnoea [Unknown]
  - Fatigue [Unknown]
  - Glossodynia [Unknown]

NARRATIVE: CASE EVENT DATE: 20251017
